FAERS Safety Report 6212896-1 (Version None)
Quarter: 2009Q2

REPORT INFORMATION
  Report Type: 
  Country: None (occurrence: None)
  Receive Date: 20090603
  Receipt Date: 20090527
  Transmission Date: 20091009
  Serious: Yes (Hospitalization)
  Sender: FDA-Public Use
  Company Number: AT-AMGEN-UK323730

PATIENT
  Sex: Male

DRUGS (14)
  1. PANITUMUMAB [Suspect]
     Indication: COLORECTAL CANCER
     Route: 042
     Dates: start: 20080613, end: 20081121
  2. IRINOTECAN HCL [Suspect]
     Route: 042
     Dates: start: 20080911, end: 20080911
  3. LEUCOVORIN CALCIUM [Suspect]
     Route: 042
     Dates: start: 20080911, end: 20080911
  4. FLUOROURACIL [Suspect]
     Route: 040
     Dates: start: 20080911, end: 20080911
  5. FLUOROURACIL [Suspect]
     Route: 042
     Dates: start: 20080911, end: 20080913
  6. METOPROLOL TARTRATE [Concomitant]
     Route: 048
     Dates: start: 20060101
  7. GENTAMICIN [Concomitant]
     Route: 061
     Dates: start: 20080828, end: 20090101
  8. FUNGORAL [Concomitant]
     Route: 061
     Dates: start: 20080823, end: 20090101
  9. FRAGMIN [Concomitant]
     Route: 058
     Dates: start: 20080704, end: 20081201
  10. LESCOL [Concomitant]
     Route: 048
     Dates: start: 20060102
  11. MARCUMAR [Concomitant]
  12. ISOCONAZOLE NITRATE [Concomitant]
  13. DIFLUCORTOLONE VALERATE [Concomitant]
  14. GENTEAL [Concomitant]
     Route: 047

REACTIONS (1)
  - PYREXIA [None]
